FAERS Safety Report 9901695 (Version 2)
Quarter: 2014Q1

REPORT INFORMATION
  Report Type: Spontaneous
  Country: MX (occurrence: MX)
  Receive Date: 20140217
  Receipt Date: 20140217
  Transmission Date: 20141002
  Serious: Yes (Death, Other)
  Sender: FDA-Public Use
  Company Number: PHHY2014MX011383

PATIENT
  Age: 48 Year
  Sex: Male

DRUGS (5)
  1. ALLOPURINOL [Suspect]
     Dosage: 300 MG, UNK
  2. FUROSEMIDE [Concomitant]
     Dosage: 20 MG, BID
  3. CALCITRIOL [Concomitant]
     Dosage: 0.25 UG, UNK
  4. ENALAPRIL [Concomitant]
     Dosage: 10 MG, UNK
  5. FERROUS FUMARATE [Concomitant]
     Dosage: 200 MG, UNK

REACTIONS (18)
  - Drug reaction with eosinophilia and systemic symptoms [Fatal]
  - Pyrexia [Fatal]
  - Tachycardia [Fatal]
  - Tachypnoea [Fatal]
  - Hypotension [Fatal]
  - Generalised erythema [Fatal]
  - Skin exfoliation [Fatal]
  - Face oedema [Fatal]
  - Ocular icterus [Fatal]
  - Lichenoid keratosis [Fatal]
  - Apoptosis [Fatal]
  - Epidermal necrosis [Fatal]
  - Lung infiltration [Fatal]
  - Rales [Fatal]
  - Cough [Fatal]
  - Acute hepatic failure [Fatal]
  - Metabolic acidosis [Unknown]
  - Respiratory distress [Unknown]
